FAERS Safety Report 14594861 (Version 1)
Quarter: 2018Q1

REPORT INFORMATION
  Report Type: Spontaneous
  Country: US (occurrence: US)
  Receive Date: 20180302
  Receipt Date: 20180302
  Transmission Date: 20180509
  Serious: Yes (Other)
  Sender: FDA-Public Use
  Company Number: US-AKORN PHARMACEUTICALS-2017AKN00535

PATIENT
  Sex: Male
  Weight: 46.26 kg

DRUGS (2)
  1. MYORISAN [Suspect]
     Active Substance: ISOTRETINOIN
     Dosage: 30 MG, 1X/DAY
     Route: 048
     Dates: start: 2016, end: 201704
  2. MYORISAN [Suspect]
     Active Substance: ISOTRETINOIN
     Indication: ACNE CYSTIC
     Dosage: 60 MG, UNK
     Route: 048
     Dates: start: 2016, end: 2016

REACTIONS (6)
  - Arthralgia [Unknown]
  - Lip swelling [Unknown]
  - Unevaluable event [Unknown]
  - Skin exfoliation [Unknown]
  - Epiphyses premature fusion [Not Recovered/Not Resolved]
  - Articular calcification [Not Recovered/Not Resolved]

NARRATIVE: CASE EVENT DATE: 2016
